FAERS Safety Report 7243836-4 (Version None)
Quarter: 2011Q1

REPORT INFORMATION
  Report Type: 
  Country: None (occurrence: None)
  Receive Date: 20110125
  Receipt Date: 20110107
  Transmission Date: 20110831
  Serious: No
  Sender: FDA-Public Use
  Company Number: US-PFIZER INC-2009272963

PATIENT
  Sex: Female

DRUGS (17)
  1. LIPITOR [Suspect]
     Dosage: 10 MG, 1X/DAY AT BEDTIME
  2. CRESTOR [Suspect]
     Dosage: UNK
  3. FLECAINIDE [Concomitant]
     Dosage: 100 MG, 2X/DAY
  4. CARDURA [Concomitant]
     Dosage: 4 MG, 1X/DAY IN MORNING
  5. ESTRADIOL [Concomitant]
     Dosage: 0.5 MG, 1X/DAY
  6. ESTRACE [Concomitant]
     Dosage: 0.05 MG, 1X/DAY
  7. LOVAZA [Concomitant]
     Dosage: UNK DF, 1X/DAY
  8. TEMAZEPAM [Concomitant]
     Dosage: 15 MG, 1X/DAY AT BEDTIME
  9. BUPROPION [Concomitant]
     Dosage: ISOMG SR, 1X/DAY
  10. FLUTICASONE [Concomitant]
     Dosage: 2 SPRAYS, EACH NOSTRIL, 1X/DAY
     Route: 045
  11. CALCIUM WITH VITAMIN D [Concomitant]
     Dosage: 1200 MG/1000 IU, 2X/DAY
  12. ALLEGRA [Concomitant]
     Dosage: 180 MG, UNK
  13. ACYCLOVIR [Concomitant]
     Indication: ORAL HERPES
     Dosage: 400 MG, 3X/DAY AS NEEDED
  14. SYNTHROID [Concomitant]
     Dosage: 0.112 UG, 1X/DAY
  15. ASPIRIN [Concomitant]
     Dosage: 1 UNK, 1X/DAY
  16. PRAVACHOL [Suspect]
     Dosage: UNK
  17. DETROL LA [Concomitant]
     Dosage: 4 MG, 1X/DAY AT BEDTIME

REACTIONS (1)
  - MUSCLE SPASMS [None]
